FAERS Safety Report 5700112-6 (Version None)
Quarter: 2008Q2

REPORT INFORMATION
  Report Type: 
  Country: None (occurrence: None)
  Receive Date: 20080410
  Receipt Date: 20080206
  Transmission Date: 20081010
  Serious: Yes (Other)
  Sender: FDA-Public Use
  Company Number: A0708412A

PATIENT

DRUGS (1)
  1. TIMENTIN [Suspect]
     Indication: DRUG USE FOR UNKNOWN INDICATION
     Dosage: 3.1G FOUR TIMES PER DAY
     Route: 042
     Dates: start: 20080201

REACTIONS (1)
  - NEUTROPENIA [None]
